FAERS Safety Report 14526764 (Version 1)
Quarter: 2018Q1

REPORT INFORMATION
  Report Type: Spontaneous
  Country: RU (occurrence: RU)
  Receive Date: 20180213
  Receipt Date: 20180213
  Transmission Date: 20180509
  Serious: Yes (Hospitalization)
  Sender: FDA-Public Use
  Company Number: RU-ASTRAZENECA-2018SE18217

PATIENT
  Age: 68 Year
  Sex: Female
  Weight: 80 kg

DRUGS (6)
  1. CARSIL [Concomitant]
     Active Substance: DIETARY SUPPLEMENT\HERBALS\MILK THISTLE
  2. PERINEVA [Concomitant]
     Active Substance: PERINDOPRIL ERBUMINE
  3. BRILINTA [Suspect]
     Active Substance: TICAGRELOR
     Indication: ANGINA UNSTABLE
     Route: 048
     Dates: start: 201711
  4. THROMBO ASS [Concomitant]
     Active Substance: ASPIRIN
  5. BIPROL [Concomitant]
  6. OMEZ [Concomitant]
     Active Substance: OMEPRAZOLE

REACTIONS (4)
  - Angina unstable [Recovered/Resolved]
  - Chest pain [Recovered/Resolved]
  - Contusion [Not Recovered/Not Resolved]
  - Nasopharyngitis [Not Recovered/Not Resolved]

NARRATIVE: CASE EVENT DATE: 201711
